FAERS Safety Report 8617485-7 (Version None)
Quarter: 2012Q3

REPORT INFORMATION
  Report Type: 
  Country: None (occurrence: None)
  Receive Date: 20120824
  Receipt Date: 20111028
  Transmission Date: 20120928
  Serious: No
  Sender: FDA-Public Use
  Company Number: US-ASTRAZENECA-2011SE65464

PATIENT
  Age: 70 Year
  Sex: Male
  Weight: 145.1 kg

DRUGS (1)
  1. SYMBICORT [Suspect]
     Indication: DYSPNOEA
     Dosage: 160/4.5MCG TWO TIMES A DAY
     Route: 055

REACTIONS (2)
  - THROAT IRRITATION [None]
  - APHONIA [None]
